FAERS Safety Report 9785728 (Version 1)
Quarter: 2013Q4

REPORT INFORMATION
  Report Type: Report from Study
  Country: US (occurrence: US)
  Receive Date: 20131227
  Receipt Date: 20131227
  Transmission Date: 20140711
  Serious: Yes (Death)
  Sender: FDA-Public Use
  Company Number: US-ROCHE-1321079

PATIENT
  Age: 60 Year
  Sex: Male
  Weight: 66.3 kg

DRUGS (2)
  1. VISMODEGIB [Suspect]
     Indication: PANCREATIC CARCINOMA
     Dosage: DOSE LEVEL 2
     Route: 048
     Dates: start: 20131025
  2. SIROLIMUS [Suspect]
     Indication: PANCREATIC CARCINOMA
     Dosage: DOSE LEVEL 2
     Route: 048
     Dates: start: 20131025

REACTIONS (2)
  - Cardiac failure [Fatal]
  - Disease progression [Fatal]
